FAERS Safety Report 8722600 (Version 2)
Quarter: 2012Q4

REPORT INFORMATION
  Report Type: 
  Country: JP (occurrence: JP)
  Receive Date: 20120814
  Receipt Date: 20121102
  Transmission Date: 20130627
  Serious: Yes (Death, Life-Threatening, Other)
  Sender: FDA-Public Use
  Company Number: JP-ROCHE-1077481

PATIENT
  Age: 70 None
  Sex: Male
  Weight: 68 kg

DRUGS (18)
  1. AVASTIN [Suspect]
     Indication: RECTAL CANCER RECURRENT
     Dosage: Nine times
     Route: 041
     Dates: start: 20090817
  2. AVASTIN [Suspect]
     Indication: RECTAL CANCER RECURRENT
     Dosage: Eight times
     Route: 041
     Dates: end: 20100426
  3. AVASTIN [Suspect]
     Indication: RECTAL CANCER RECURRENT
     Dosage: Eight times
     Route: 041
     Dates: start: 20100510, end: 20100816
  4. AVASTIN [Suspect]
     Indication: RECTAL CANCER RECURRENT
     Dosage: 26 times
     Route: 041
     Dates: start: 20100830, end: 20110912
  5. AVASTIN [Suspect]
     Indication: RECTAL CANCER RECURRENT
     Dosage: Eight times
     Route: 041
     Dates: start: 20111114, end: 20120409
  6. ELPLAT [Concomitant]
     Indication: RECTAL CANCER RECURRENT
     Dosage: 17 times
     Route: 041
     Dates: start: 20090817, end: 20100426
  7. ELPLAT [Concomitant]
     Indication: RECTAL CANCER RECURRENT
     Dosage: Eight times
     Route: 041
     Dates: start: 20111114, end: 20120409
  8. LEVOFOLINATE [Concomitant]
     Indication: RECTAL CANCER RECURRENT
     Dosage: 17 times
     Route: 041
     Dates: start: 20090817, end: 20100426
  9. LEVOFOLINATE [Concomitant]
     Indication: RECTAL CANCER RECURRENT
     Dosage: Eight times
     Route: 041
     Dates: start: 20100510, end: 20100816
  10. LEVOFOLINATE [Concomitant]
     Indication: RECTAL CANCER RECURRENT
     Dosage: 26 times
     Route: 041
     Dates: start: 20100830, end: 20110912
  11. 5-FU [Concomitant]
     Indication: RECTAL CANCER RECURRENT
     Dosage: 17 times
     Route: 040
     Dates: start: 20090817, end: 20100426
  12. 5-FU [Concomitant]
     Indication: RECTAL CANCER RECURRENT
     Dosage: 17 times
     Route: 041
     Dates: start: 20090817, end: 201004
  13. 5-FU [Concomitant]
     Indication: RECTAL CANCER RECURRENT
     Dosage: Eight times
     Route: 040
     Dates: start: 20100510, end: 20100816
  14. 5-FU [Concomitant]
     Indication: RECTAL CANCER RECURRENT
     Dosage: Eight times
     Route: 041
     Dates: start: 20100510, end: 201008
  15. 5-FU [Concomitant]
     Indication: RECTAL CANCER RECURRENT
     Dosage: 26 times
     Route: 040
     Dates: start: 20100830, end: 20110912
  16. 5-FU [Concomitant]
     Indication: RECTAL CANCER RECURRENT
     Dosage: 26 times
     Route: 041
     Dates: start: 20100830, end: 201109
  17. IRINOTECAN HYDROCHLORIDE TRIHYDRATE [Concomitant]
     Indication: RECTAL CANCER RECURRENT
     Dosage: 26 times
     Route: 041
     Dates: start: 20100830, end: 20110912
  18. TS-1 [Concomitant]
     Indication: RECTAL CANCER RECURRENT
     Dosage: Eight times
     Route: 048
     Dates: start: 20111114, end: 20120409

REACTIONS (8)
  - Intestinal perforation [Not Recovered/Not Resolved]
  - Septic shock [Not Recovered/Not Resolved]
  - Renal failure acute [Fatal]
  - Disseminated intravascular coagulation [Fatal]
  - Malignant pleural effusion [Unknown]
  - Malignant ascites [Unknown]
  - Disease progression [Fatal]
  - Device related infection [Unknown]
